FAERS Safety Report 4649547-3 (Version None)
Quarter: 2005Q2

REPORT INFORMATION
  Report Type: 
  Country: None (occurrence: None)
  Receive Date: 20050502
  Receipt Date: 20050422
  Transmission Date: 20051028
  Serious: Yes (Death)
  Sender: FDA-Public Use
  Company Number: PHNR2005AU00806

PATIENT
  Age: 25 Year
  Sex: Male

DRUGS (1)
  1. CLOZAPINE [Suspect]

REACTIONS (9)
  - AGRANULOCYTOSIS [None]
  - CHEST DISCOMFORT [None]
  - HEART RATE INCREASED [None]
  - HYPERSENSITIVITY [None]
  - INFLUENZA LIKE ILLNESS [None]
  - MYOCARDITIS [None]
  - PYREXIA [None]
  - RESPIRATORY RATE INCREASED [None]
  - TROPONIN INCREASED [None]
